FAERS Safety Report 7750301-4 (Version None)
Quarter: 2011Q3

REPORT INFORMATION
  Report Type: 
  Country: None (occurrence: None)
  Receive Date: 20110914
  Receipt Date: 20110901
  Transmission Date: 20111222
  Serious: Yes (Hospitalization, Other)
  Sender: FDA-Public Use
  Company Number: US-ELI_LILLY_AND_COMPANY-US200912001758

PATIENT
  Sex: Male

DRUGS (18)
  1. FUROSEMIDE [Concomitant]
     Dosage: 40 MG, UNK
  2. LEVOTHYROXINE SODIUM [Concomitant]
     Dosage: 100 MG, UNK
  3. POTASSIUM [Concomitant]
     Dosage: 20 MEQ, UNK
  4. CYMBALTA [Concomitant]
     Dosage: 60 MG, UNK
  5. FORTEO [Suspect]
     Indication: OSTEOPOROSIS
     Dosage: 20 UG, DAILY (1/D)
     Route: 058
  6. FORTEO [Suspect]
     Dosage: 20 UG, DAILY (1/D)
     Route: 058
     Dates: start: 20090308
  7. GABAPENTIN [Concomitant]
     Dosage: 300 MG, 3/D
  8. PREDNISONE [Concomitant]
     Dosage: 5 MG, 2/D
  9. CARBIDOPA + LEVODOPA [Concomitant]
  10. ALPRAZOLAM [Concomitant]
     Dosage: 0.5 MG, UNK
  11. ACTOS [Concomitant]
     Dosage: 15 MG, UNK
  12. MORPHINE SULFATE [Concomitant]
     Dosage: 15 MG, UNK
  13. FERROUS SULFATE TAB [Concomitant]
     Dosage: 200 MG, UNK
  14. COUMADIN [Concomitant]
     Dosage: 2 MG, UNK
  15. METHADONE HCL [Concomitant]
     Dosage: 5 MG, UNK
  16. FORTEO [Suspect]
     Dosage: 20 UG, QD
     Route: 058
  17. NOVOLOG [Concomitant]
  18. FENTANYL [Concomitant]
     Dosage: 150 MG, UNK

REACTIONS (16)
  - STAPHYLOCOCCAL SEPSIS [None]
  - SPINAL COMPRESSION FRACTURE [None]
  - LOWER LIMB FRACTURE [None]
  - RHEUMATOID ARTHRITIS [None]
  - RADICULITIS [None]
  - MYOCARDIAL INFARCTION [None]
  - HOSPITALISATION [None]
  - BONE DISORDER [None]
  - CEREBROVASCULAR ACCIDENT [None]
  - SACROILIITIS [None]
  - POLYNEUROPATHY [None]
  - STAPHYLOCOCCAL INFECTION [None]
  - SKIN ULCER [None]
  - OSTEOARTHRITIS [None]
  - INTERVERTEBRAL DISC OPERATION [None]
  - POST LAMINECTOMY SYNDROME [None]
